FAERS Safety Report 15203102 (Version 1)
Quarter: 2018Q3

REPORT INFORMATION
  Report Type: Report from Study
  Country: US (occurrence: US)
  Receive Date: 20180726
  Receipt Date: 20180726
  Transmission Date: 20181010
  Serious: Yes (Life-Threatening, Hospitalization)
  Sender: FDA-Public Use
  Company Number: US-SA-2017SA179765

PATIENT
  Age: 60 Year
  Sex: Male
  Weight: 98.5 kg

DRUGS (20)
  1. LOSARTAN. [Concomitant]
     Active Substance: LOSARTAN
     Dosage: UNK
     Dates: start: 201709
  2. METOPROLOL TARTRATE. [Concomitant]
     Active Substance: METOPROLOL TARTRATE
     Dosage: 50 MG,QD
     Route: 048
     Dates: start: 1997
  3. CLARITIN ALLERGIC [Concomitant]
     Dosage: UNK
     Route: 048
     Dates: start: 20120507
  4. METFORMIN [Concomitant]
     Active Substance: METFORMIN HYDROCHLORIDE
     Dosage: UNK
     Route: 048
     Dates: start: 20130816
  5. INSULIN GLARGINE [Suspect]
     Active Substance: INSULIN GLARGINE
     Dosage: UNK UNK,QD
     Route: 058
  6. ISOSORBIDE MONONITRATE. [Concomitant]
     Active Substance: ISOSORBIDE MONONITRATE
     Dosage: 30 MG,QD
     Route: 048
     Dates: start: 1997
  7. INSULIN GLARGINE [Suspect]
     Active Substance: INSULIN GLARGINE
     Indication: TYPE 2 DIABETES MELLITUS
     Dosage: UNK UNK,QD
     Route: 058
     Dates: start: 20170302
  8. FENOFIBRATE. [Concomitant]
     Active Substance: FENOFIBRATE
     Dosage: 134 MG,QD
     Route: 048
     Dates: start: 20140807
  9. PLAVIX [Concomitant]
     Active Substance: CLOPIDOGREL BISULFATE
     Dosage: 75 MG,QD
     Route: 048
     Dates: start: 1997
  10. METFORMIN HYDROCHLORIDE. [Suspect]
     Active Substance: METFORMIN HYDROCHLORIDE
     Indication: TYPE 2 DIABETES MELLITUS
     Dosage: 2000 MG,QD
     Route: 048
     Dates: start: 20130816
  11. NITROGLYCERIN. [Concomitant]
     Active Substance: NITROGLYCERIN
     Indication: PROPHYLAXIS
     Dosage: .4 MG,QD
     Route: 048
     Dates: start: 1997
  12. LISINOPRIL. [Concomitant]
     Active Substance: LISINOPRIL
     Dosage: 10 MG,QD
     Route: 048
     Dates: start: 1997
  13. ZOCOR [Concomitant]
     Active Substance: SIMVASTATIN
     Dosage: 40 MG,QD
     Route: 048
     Dates: start: 2011
  14. LASIX + K [Concomitant]
     Active Substance: FUROSEMIDE\POTASSIUM CHLORIDE
     Dosage: UNK
     Route: 048
     Dates: start: 20140108
  15. GLIPIZIDE. [Suspect]
     Active Substance: GLIPIZIDE
     Indication: TYPE 2 DIABETES MELLITUS
     Dosage: 10 MG,QD
     Route: 048
     Dates: start: 20150820
  16. ACETYLSALICYLIC ACID [Concomitant]
     Active Substance: ASPIRIN
     Indication: PROPHYLAXIS
     Dosage: 325 MG,QD
     Route: 048
     Dates: start: 1997
  17. FUROSEMIDE. [Concomitant]
     Active Substance: FUROSEMIDE
     Dosage: 20 MG,QD
     Route: 048
     Dates: start: 20140108
  18. FISH OIL [Concomitant]
     Active Substance: FISH OIL
     Dosage: 4 G,QD
     Route: 048
     Dates: start: 20120812
  19. GLICLAZIDE [Concomitant]
     Active Substance: GLICLAZIDE
     Dosage: 10 MG,QD
     Route: 048
     Dates: start: 20120507
  20. GLIPIZIDE. [Concomitant]
     Active Substance: GLIPIZIDE
     Dosage: UNK
     Route: 048
     Dates: start: 20150820

REACTIONS (2)
  - Angina pectoris [Recovered/Resolved]
  - Chest pain [Unknown]

NARRATIVE: CASE EVENT DATE: 20170914
